FAERS Safety Report 5593147-8 (Version None)
Quarter: 2008Q1

REPORT INFORMATION
  Report Type: 
  Country: None (occurrence: None)
  Receive Date: 20080114
  Receipt Date: 20080114
  Transmission Date: 20080703
  Serious: Yes (Other)
  Sender: FDA-Public Use
  Company Number: None

PATIENT
  Age: 58 Year
  Sex: Female
  Weight: 51.7101 kg

DRUGS (2)
  1. FOSAMAX [Suspect]
     Indication: PROPHYLAXIS
     Dosage: 1 TABLET  WEEKLY  PO
     Route: 048
     Dates: start: 20061205, end: 20071202
  2. FOSAMAX [Suspect]
     Indication: RESORPTION BONE INCREASED
     Dosage: 1 TABLET  WEEKLY  PO
     Route: 048
     Dates: start: 20061205, end: 20071202

REACTIONS (6)
  - ARTHRALGIA [None]
  - ARTHRITIS [None]
  - GAIT DISTURBANCE [None]
  - PAIN [None]
  - PAIN IN EXTREMITY [None]
  - SLEEP DISORDER [None]
